FAERS Safety Report 7550148-8 (Version None)
Quarter: 2011Q2

REPORT INFORMATION
  Report Type: 
  Country: None (occurrence: None)
  Receive Date: 20110615
  Receipt Date: 20110608
  Transmission Date: 20111010
  Serious: Yes (Hospitalization)
  Sender: FDA-Public Use
  Company Number: US-US-EMD SERONO, INC.-7055967

PATIENT
  Sex: Male
  Weight: 68 kg

DRUGS (4)
  1. UNSPECIFIED MEDICATIONS [Concomitant]
     Indication: HYPERTENSION
  2. ACTOS [Concomitant]
     Indication: DIABETES MELLITUS
  3. REBIF [Suspect]
     Indication: MULTIPLE SCLEROSIS
     Route: 058
     Dates: start: 20031212, end: 20110106
  4. STEROIDS [Suspect]

REACTIONS (3)
  - PSYCHOTIC DISORDER [None]
  - MULTIPLE SCLEROSIS RELAPSE [None]
  - LOSS OF CONSCIOUSNESS [None]
